FAERS Safety Report 10627695 (Version 2)
Quarter: 2014Q4

REPORT INFORMATION
  Report Type: Report from Study
  Country: US (occurrence: US)
  Receive Date: 20141205
  Receipt Date: 20141205
  Transmission Date: 20150529
  Serious: Yes (Other)
  Sender: FDA-Public Use
  Company Number: US-BIOGENIDEC-2014BI126654

PATIENT
  Age: 51 Year
  Sex: Male

DRUGS (1)
  1. AVONEX [Suspect]
     Active Substance: INTERFERON BETA-1A
     Indication: MULTIPLE SCLEROSIS
     Route: 030
     Dates: start: 20081125, end: 20141017

REACTIONS (4)
  - Nervousness [Unknown]
  - Depressed mood [Unknown]
  - Anaphylactic reaction [Recovered/Resolved]
  - Cough [Unknown]

NARRATIVE: CASE EVENT DATE: 201410
